FAERS Safety Report 24258424 (Version 1)
Quarter: 2024Q3

REPORT INFORMATION
  Report Type: Spontaneous
  Country: US (occurrence: US)
  Receive Date: 20240828
  Receipt Date: 20240828
  Transmission Date: 20241016
  Serious: Yes (Hospitalization)
  Sender: PFIZER
  Company Number: US-PFIZER INC-202300248654

PATIENT
  Age: 13 Year
  Sex: Male
  Weight: 34.95 kg

DRUGS (5)
  1. OXBRYTA [Suspect]
     Active Substance: VOXELOTOR
     Indication: Sickle cell anaemia
     Dosage: 1500 MG, DAILY
     Route: 048
     Dates: start: 20230215
  2. OXBRYTA [Suspect]
     Active Substance: VOXELOTOR
     Dosage: 900 MG, DAILY
     Route: 048
  3. OXBRYTA [Suspect]
     Active Substance: VOXELOTOR
     Dosage: 1500 MG, 1X/DAY
     Route: 048
  4. OXBRYTA [Suspect]
     Active Substance: VOXELOTOR
     Dosage: 3 TABLETS ONCE DAILY
     Route: 048
     Dates: start: 20240726
  5. HYDROXYUREA [Concomitant]
     Active Substance: HYDROXYUREA
     Indication: Sickle cell disease
     Dosage: UNK
     Route: 048

REACTIONS (3)
  - Illness [Unknown]
  - Renal disorder [Unknown]
  - Off label use [Unknown]
